FAERS Safety Report 8983937 (Version 1)
Quarter: 2012Q4

REPORT INFORMATION
  Report Type: Spontaneous
  Country: US (occurrence: None)
  Receive Date: 20121218
  Receipt Date: 20121218
  Transmission Date: 20130627
  Serious: Yes (Other)
  Sender: FDA-Public Use
  Company Number: None

PATIENT
  Age: 57 Year
  Sex: Female
  Weight: 70.31 kg

DRUGS (2)
  1. CYMBALTA 30 MG LILLY [Suspect]
     Dosage: 90 mg. daily po
     Route: 048
  2. SEROQUEL [Suspect]
     Dosage: 200 mgs. bedtime po
     Route: 048

REACTIONS (3)
  - Dizziness [None]
  - Myalgia [None]
  - Arthralgia [None]
